FAERS Safety Report 8018739-8 (Version None)
Quarter: 2012Q1

REPORT INFORMATION
  Report Type: 
  Country: None (occurrence: None)
  Receive Date: 20120103
  Receipt Date: 20120103
  Transmission Date: 20120608
  Serious: Yes (Hospitalization, Disabling)
  Sender: FDA-Public Use
  Company Number: None

PATIENT
  Age: 73 Year
  Sex: Male
  Weight: 116.11 kg

DRUGS (1)
  1. AMLODIPINE [Suspect]
     Indication: BLOOD CHOLESTEROL INCREASED
     Dosage: 1TABLET
     Dates: start: 20110208, end: 20111003

REACTIONS (2)
  - TUBULOINTERSTITIAL NEPHRITIS [None]
  - DIALYSIS [None]
